FAERS Safety Report 7985572-2 (Version None)
Quarter: 2011Q4

REPORT INFORMATION
  Report Type: 
  Country: None (occurrence: None)
  Receive Date: 20111216
  Receipt Date: 20111213
  Transmission Date: 20120403
  Serious: No
  Sender: FDA-Public Use
  Company Number: US-PFIZER INC-2011303805

PATIENT
  Sex: Female
  Weight: 86.168 kg

DRUGS (16)
  1. EPIPEN [Concomitant]
     Indication: URTICARIA
  2. BENADRYL [Concomitant]
     Indication: ANAPHYLACTIC REACTION
  3. UNASYN [Suspect]
     Indication: INFECTION
  4. UNASYN [Suspect]
     Indication: IMMUNODEFICIENCY
  5. IMMUNOGLOBULINS [Concomitant]
     Dosage: UNK
     Route: 042
  6. EPIPEN [Concomitant]
     Indication: ANAPHYLACTIC REACTION
  7. UNASYN [Suspect]
     Indication: OSTEOMYELITIS
     Dosage: 3 G, 4X/DAY
     Route: 042
  8. CUBICIN [Concomitant]
     Dosage: UNK
  9. MEROPENEM [Concomitant]
     Dosage: UNK
  10. DYAZIDE [Concomitant]
     Indication: HYPERTENSION
     Dosage: UNK
  11. BENADRYL [Concomitant]
     Indication: DYSPNOEA
  12. EPIPEN [Concomitant]
     Indication: HYPERSENSITIVITY
     Dosage: UNK
  13. UNASYN [Suspect]
     Indication: SINUSITIS
  14. BENADRYL [Concomitant]
     Indication: HYPERSENSITIVITY
     Dosage: UNK
  15. BENADRYL [Concomitant]
     Indication: URTICARIA
  16. EPIPEN [Concomitant]
     Indication: DYSPNOEA

REACTIONS (4)
  - C-REACTIVE PROTEIN INCREASED [None]
  - NEUTROPHIL COUNT INCREASED [None]
  - FULL BLOOD COUNT INCREASED [None]
  - EOSINOPHIL COUNT INCREASED [None]
